FAERS Safety Report 6129282-5 (Version None)
Quarter: 2009Q2

REPORT INFORMATION
  Report Type: 
  Country: None (occurrence: None)
  Receive Date: 20090320
  Receipt Date: 20090310
  Transmission Date: 20091009
  Serious: Yes (Other)
  Sender: FDA-Public Use
  Company Number: THQ2009A01091

PATIENT
  Age: 61 Year
  Sex: Female

DRUGS (9)
  1. PIOGLITAZONE HCL [Suspect]
     Indication: TYPE 2 DIABETES MELLITUS
     Dates: start: 20080528, end: 20081109
  2. EXENATIDE [Suspect]
     Indication: TYPE 2 DIABETES MELLITUS
     Dosage: 10 MCG
     Dates: start: 20070320, end: 20070415
  3. EXENATIDE [Suspect]
     Indication: TYPE 2 DIABETES MELLITUS
     Dosage: 10 MCG
     Dates: start: 20070416, end: 20081109
  4. METFORMIN HCL [Suspect]
     Indication: TYPE 2 DIABETES MELLITUS
     Dosage: 1700 (850 ,2 IN, 1 D)
     Dates: start: 20041102
  5. MICARDIS HCT [Concomitant]
  6. EFFEXOR [Concomitant]
  7. NEXIUM [Concomitant]
  8. NORVASC [Concomitant]
  9. ATORVASTATIN CALCIUM [Suspect]

REACTIONS (1)
  - GASTRECTOMY [None]
